FAERS Safety Report 24211715 (Version 1)
Quarter: 2024Q3

REPORT INFORMATION
  Report Type: Spontaneous
  Country: IE (occurrence: IE)
  Receive Date: 20240814
  Receipt Date: 20240814
  Transmission Date: 20241016
  Serious: Yes (Other)
  Sender: TEVA
  Company Number: None

PATIENT
  Age: 15 Year
  Sex: Female
  Weight: 43.6 kg

DRUGS (2)
  1. OLANZAPINE [Suspect]
     Active Substance: OLANZAPINE
     Indication: Thinking abnormal
     Dosage: OLANZAPINE (G)
     Route: 048
     Dates: start: 20240408, end: 20240722
  2. PROMETHAZINE [Concomitant]
     Active Substance: PROMETHAZINE HYDROCHLORIDE
     Indication: Poor quality sleep
     Route: 065
     Dates: start: 20240401, end: 20240722

REACTIONS (4)
  - Hypoglycaemia [Unknown]
  - Increased appetite [Unknown]
  - Vision blurred [Unknown]
  - Pollakiuria [Unknown]

NARRATIVE: CASE EVENT DATE: 20240709
